FAERS Safety Report 6155719-1 (Version None)
Quarter: 2009Q2

REPORT INFORMATION
  Report Type: 
  Country: None (occurrence: None)
  Receive Date: 20090413
  Receipt Date: 20090402
  Transmission Date: 20091009
  Serious: Yes (Other)
  Sender: FDA-Public Use
  Company Number: 236601

PATIENT
  Age: 26 Year
  Sex: Female

DRUGS (3)
  1. VINCRISTINE SULFATE [Suspect]
     Indication: DIFFUSE LARGE B-CELL LYMPHOMA
  2. CYCLOPHOSPHAMIDE [Suspect]
     Indication: DIFFUSE LARGE B-CELL LYMPHOMA
  3. DOXORUBICIN HCL [Suspect]
     Indication: DIFFUSE LARGE B-CELL LYMPHOMA

REACTIONS (3)
  - DRUG EXPOSURE DURING PREGNANCY [None]
  - DRUG TOXICITY [None]
  - PLACENTAL DISORDER [None]
